FAERS Safety Report 8315279-3 (Version None)
Quarter: 2012Q2

REPORT INFORMATION
  Report Type: 
  Country: None (occurrence: None)
  Receive Date: 20120426
  Receipt Date: 20120417
  Transmission Date: 20120825
  Serious: Yes (Hospitalization)
  Sender: FDA-Public Use
  Company Number: RO-ABBOTT-12P-135-0927129-00

PATIENT
  Sex: Female
  Weight: 54 kg

DRUGS (15)
  1. ZEMPLAR [Suspect]
     Indication: HYPERPARATHYROIDISM SECONDARY
     Route: 048
     Dates: start: 20110106, end: 20110705
  2. PREDUCTAL [Concomitant]
     Indication: MYOCARDIAL ISCHAEMIA
     Dosage: DAILY DOSE: 70MG
     Route: 048
     Dates: start: 20060131
  3. CALCIUM CARBONATE [Concomitant]
     Indication: HYPERPHOSPHATAEMIA
     Dosage: APPROXIMATELY 8 GRAMS/DAY
     Route: 048
     Dates: start: 20110202
  4. ZEMPLAR [Suspect]
     Dates: start: 20120123
  5. ALLOPURINOLUM [Concomitant]
     Indication: PRODUCT USED FOR UNKNOWN INDICATION
     Dates: start: 20050913
  6. BETAHISTINA [Concomitant]
     Indication: PRODUCT USED FOR UNKNOWN INDICATION
     Dates: start: 20101101
  7. TIMOLOL MALEATE [Concomitant]
     Indication: PRODUCT USED FOR UNKNOWN INDICATION
  8. XALATAN [Concomitant]
     Indication: PRODUCT USED FOR UNKNOWN INDICATION
  9. ASPENTER [Concomitant]
     Indication: ARTERIOSCLEROSIS
     Route: 048
     Dates: start: 20110405
  10. CARVEDILOL [Concomitant]
     Indication: HYPERTENSION
     Dosage: DAILY DOSE: 12.5MG
     Route: 048
     Dates: start: 20110202
  11. ZEMPLAR [Suspect]
     Dates: start: 20110705, end: 20120123
  12. SODIUM BICARBONATE [Concomitant]
     Indication: METABOLIC ACIDOSIS
     Route: 048
     Dates: start: 20090901
  13. ENALAPRIL MALEATE [Concomitant]
     Indication: HYPERTENSION
     Dosage: DAILY DOSE: 10MG
     Route: 048
     Dates: start: 20050913
  14. FUROSEMIDE [Concomitant]
     Indication: HYPERTENSION
     Route: 048
     Dates: start: 20110706
  15. SIMVASTATIN [Concomitant]
     Indication: DYSLIPIDAEMIA
     Route: 048
     Dates: start: 20050913

REACTIONS (5)
  - HAEMATURIA [None]
  - LEUKOCYTURIA [None]
  - URINARY TRACT INFECTION ENTEROCOCCAL [None]
  - TRANSITIONAL CELL CARCINOMA [None]
  - URINARY BLADDER HAEMORRHAGE [None]
